FAERS Safety Report 17824116 (Version 1)
Quarter: 2020Q2

REPORT INFORMATION
  Report Type: Spontaneous
  Country: US (occurrence: US)
  Receive Date: 20200524
  Receipt Date: 20200524
  Transmission Date: 20200714
  Serious: Yes (Death, Hospitalization)
  Sender: FDA-Public Use
  Company Number: None

PATIENT
  Age: 10 Year
  Sex: Male
  Weight: 36.1 kg

DRUGS (1)
  1. DEXAMETHASONE. [Suspect]
     Active Substance: DEXAMETHASONE
     Dates: end: 20200521

REACTIONS (9)
  - Spleen scan abnormal [None]
  - Septic shock [None]
  - Continuous haemodiafiltration [None]
  - Colitis [None]
  - Encephalopathy [None]
  - Sinus tachycardia [None]
  - Ascites [None]
  - Gastrointestinal necrosis [None]
  - Cardiac arrest [None]

NARRATIVE: CASE EVENT DATE: 20200522
